FAERS Safety Report 12484999 (Version 1)
Quarter: 2016Q2

REPORT INFORMATION
  Report Type: Spontaneous
  Country: US (occurrence: None)
  Receive Date: 20160620
  Receipt Date: 20160620
  Transmission Date: 20160815
  Serious: Yes (Other)
  Sender: FDA-Public Use
  Company Number: None

PATIENT
  Age: 39 Year
  Sex: Female
  Weight: 84.37 kg

DRUGS (4)
  1. NIFEDIPINE. [Concomitant]
     Active Substance: NIFEDIPINE
  2. COREG [Concomitant]
     Active Substance: CARVEDILOL
  3. LISINOPRIL. [Suspect]
     Active Substance: LISINOPRIL
     Indication: HYPERTENSION
     Dosage: IN THE MORNING TAKEN BY MOUTH
     Route: 048
  4. COLONIDINE [Concomitant]

REACTIONS (6)
  - Feeling abnormal [None]
  - Weight decreased [None]
  - Thyroid disorder [None]
  - Angioedema [None]
  - Impaired work ability [None]
  - Insomnia [None]
